FAERS Safety Report 22375002 (Version 2)
Quarter: 2025Q2

REPORT INFORMATION
  Report Type: Spontaneous
  Country: IT (occurrence: IT)
  Receive Date: 20230527
  Receipt Date: 20250524
  Transmission Date: 20250716
  Serious: Yes (Hospitalization, Other)
  Sender: AUROBINDO
  Company Number: IT-DSJP-DSE-2023-118620

PATIENT
  Age: 53 Year
  Sex: Male

DRUGS (3)
  1. OLMESARTAN [Suspect]
     Active Substance: OLMESARTAN
     Indication: Hypertension
     Route: 065
  2. TUROCTOCOG ALFA [Concomitant]
     Active Substance: TUROCTOCOG ALFA
     Indication: Factor VIII deficiency
     Route: 065
  3. ASPIRIN [Concomitant]
     Active Substance: ASPIRIN
     Indication: Factor VIII deficiency
     Route: 065

REACTIONS (2)
  - Carotid artery dissection [Recovered/Resolved]
  - Renal failure [Unknown]
